FAERS Safety Report 4839785-9 (Version None)
Quarter: 2005Q4

REPORT INFORMATION
  Report Type: 
  Country: None (occurrence: None)
  Receive Date: 20051129
  Receipt Date: 20050908
  Transmission Date: 20060501
  Serious: Yes (Other)
  Sender: FDA-Public Use
  Company Number: US-GLAXOSMITHKLINE-A0573479A

PATIENT
  Age: 46 Year
  Sex: Female
  Weight: 77.3 kg

DRUGS (5)
  1. WELLBUTRIN [Suspect]
     Indication: DRUG USE FOR UNKNOWN INDICATION
     Dosage: 100MG PER DAY
     Route: 048
     Dates: start: 20050104
  2. ORTHO TRI-CYCLEN [Suspect]
     Dosage: 1TAB UNKNOWN
     Route: 048
     Dates: start: 20050103, end: 20050404
  3. PREVACID [Concomitant]
  4. ANTIHISTAMINE [Concomitant]
  5. HYDROXYZINE [Concomitant]
     Dosage: 1TAB THREE TIMES PER DAY
     Route: 048
     Dates: start: 20050316

REACTIONS (4)
  - HYPERSENSITIVITY [None]
  - PRURITUS [None]
  - RASH [None]
  - URTICARIA [None]
